FAERS Safety Report 23364323 (Version 1)
Quarter: 2024Q1

REPORT INFORMATION
  Report Type: Spontaneous
  Country: IL (occurrence: IT)
  Receive Date: 20240104
  Receipt Date: 20240104
  Transmission Date: 20240410
  Serious: Yes (Other)
  Sender: FDA-Public Use
  Company Number: IL-TEVA-VS-3135029

PATIENT
  Age: 34 Year

DRUGS (5)
  1. CISPLATIN [Suspect]
     Active Substance: CISPLATIN
     Indication: Diffuse large B-cell lymphoma stage III
     Dosage: TIME INTERVAL: CYCLICAL: 2 CYCLES OF R-DHAP REGIMEN
     Route: 065
  2. DEXAMETHASONE [Suspect]
     Active Substance: DEXAMETHASONE
     Indication: Diffuse large B-cell lymphoma stage III
     Dosage: TIME INTERVAL: CYCLICAL: 2 CYCLES OF R-DHAP REGIMEN
     Route: 065
  3. RITUXIMAB [Suspect]
     Active Substance: RITUXIMAB
     Indication: Diffuse large B-cell lymphoma stage III
     Dosage: TIME INTERVAL: CYCLICAL: 2 CYCLES AS A PART OF R-DHAP REGIMEN
     Route: 065
  4. CYTARABINE [Suspect]
     Active Substance: CYTARABINE
     Indication: Diffuse large B-cell lymphoma stage III
     Dosage: TIME INTERVAL: CYCLICAL: 2 CYCLES OF R-DHAP REGIMEN
     Route: 065
  5. GENETICALLY-MODIFIED AUTOLOGOUS T CELLS NOS [Suspect]
     Active Substance: GENETICALLY-MODIFIED AUTOLOGOUS T CELLS NOS
     Indication: Diffuse large B-cell lymphoma stage III
     Dosage: 240 * 10*6 CELLS INFUSION
     Route: 065

REACTIONS (2)
  - Cytokine release syndrome [Unknown]
  - Therapy non-responder [Unknown]
